FAERS Safety Report 4456052-6 (Version None)
Quarter: 2004Q3

REPORT INFORMATION
  Report Type: 
  Country: None (occurrence: None)
  Receive Date: 20040920
  Receipt Date: 20040909
  Transmission Date: 20050211
  Serious: Yes (Other)
  Sender: FDA-Public Use
  Company Number: CHNY2004JP00574

PATIENT
  Age: 36 Year
  Sex: Female
  Weight: 52 kg

DRUGS (1)
  1. NICOTINE [Suspect]
     Indication: SMOKING CESSATION THERAPY
     Dosage: 21MG, QD, TRANSDERMAL
     Route: 062
     Dates: start: 20040325, end: 20040331

REACTIONS (3)
  - DYSGEUSIA [None]
  - FACIAL PALSY [None]
  - FACIAL SPASM [None]
